FAERS Safety Report 5199483-1 (Version None)
Quarter: 2006Q4

REPORT INFORMATION
  Report Type: 
  Country: None (occurrence: None)
  Receive Date: 20061229
  Receipt Date: 20061220
  Transmission Date: 20070319
  Serious: Yes (Other)
  Sender: FDA-Public Use
  Company Number: T200601478

PATIENT
  Age: 64 Year
  Sex: Male

DRUGS (1)
  1. OPTIRAY 350 [Suspect]
     Indication: UROGRAM
     Dosage: 50ML, SINGLE, INTRAVENOUS
     Route: 042
     Dates: start: 20061219, end: 20061219

REACTIONS (7)
  - CARDIAC ARREST [None]
  - CONFUSIONAL STATE [None]
  - CONVULSION [None]
  - DYSPNOEA [None]
  - PROCEDURAL COMPLICATION [None]
  - RASH GENERALISED [None]
  - URTICARIA GENERALISED [None]
